FAERS Safety Report 4743704-3 (Version None)
Quarter: 2005Q3

REPORT INFORMATION
  Report Type: 
  Country: None (occurrence: None)
  Receive Date: 20050812
  Receipt Date: 20050804
  Transmission Date: 20060218
  Serious: Yes (Other)
  Sender: FDA-Public Use
  Company Number: PHBS2005BR11373

PATIENT
  Age: 61 Year
  Sex: Female
  Weight: 63 kg

DRUGS (2)
  1. DIOVAN AMLO [Suspect]
     Indication: HYPERTENSION
     Dosage: 160 VALS - 5 AMLO MG/DAY
     Route: 048
     Dates: start: 20050731, end: 20050801
  2. DIABINESE [Concomitant]
     Indication: DIABETES MELLITUS
     Dosage: 250 MG, TID
     Route: 048

REACTIONS (4)
  - BLOOD GLUCOSE INCREASED [None]
  - DRY MOUTH [None]
  - DRY THROAT [None]
  - MUSCLE SPASMS [None]
